FAERS Safety Report 11409563 (Version 2)
Quarter: 2015Q4

REPORT INFORMATION
  Report Type: Report from Study
  Country: BE (occurrence: BE)
  Receive Date: 20150824
  Receipt Date: 20151012
  Transmission Date: 20160304
  Serious: Yes (Death, Hospitalization, Other)
  Sender: FDA-Public Use
  Company Number: BE-BAYER-2015-404396

PATIENT
  Age: 68 Year
  Sex: Male

DRUGS (1)
  1. REGORAFENIB [Suspect]
     Active Substance: REGORAFENIB
     Indication: COLORECTAL CANCER METASTATIC
     Dosage: DAILY DOSE 160 MG
     Route: 048
     Dates: start: 201312, end: 20140113

REACTIONS (6)
  - Jaundice [Fatal]
  - Hepatotoxicity [None]
  - Alanine aminotransferase abnormal [Fatal]
  - Hepatitis [Fatal]
  - Aspartate aminotransferase abnormal [Fatal]
  - Asthenia [Fatal]

NARRATIVE: CASE EVENT DATE: 20140114
